FAERS Safety Report 5034529-2 (Version None)
Quarter: 2006Q2

REPORT INFORMATION
  Report Type: 
  Country: None (occurrence: None)
  Receive Date: 20060621
  Receipt Date: 20060609
  Transmission Date: 20061013
  Serious: Yes (Hospitalization)
  Sender: FDA-Public Use
  Company Number: E2090-00009-SPO-JP

PATIENT
  Age: 38 Year
  Sex: Female

DRUGS (5)
  1. ZONISAMIDE [Suspect]
     Indication: EPILEPSY
     Dosage: 200 MG, ORAL
     Route: 048
     Dates: start: 20060310, end: 20060502
  2. FAMOTIDINE [Concomitant]
  3. MUCOSTA (REBAMIPIDE) [Concomitant]
  4. VOLTAREN [Concomitant]
  5. PHENYTOIN [Concomitant]

REACTIONS (9)
  - ALANINE AMINOTRANSFERASE INCREASED [None]
  - ASPARTATE AMINOTRANSFERASE INCREASED [None]
  - CYTOMEGALOVIRUS INFECTION [None]
  - DRUG HYPERSENSITIVITY [None]
  - EPSTEIN-BARR VIRUS INFECTION [None]
  - GAMMA-GLUTAMYLTRANSFERASE INCREASED [None]
  - OEDEMA [None]
  - RESPIRATORY DISORDER [None]
  - THERAPY NON-RESPONDER [None]
